FAERS Safety Report 7694723-9 (Version None)
Quarter: 2011Q3

REPORT INFORMATION
  Report Type: 
  Country: None (occurrence: None)
  Receive Date: 20110816
  Receipt Date: 20110802
  Transmission Date: 20111222
  Serious: Yes (Other)
  Sender: FDA-Public Use
  Company Number: AUR-APL-2011-04523

PATIENT
  Age: 79 Year
  Sex: Male
  Weight: 79.3795 kg

DRUGS (7)
  1. FLOMAX [Concomitant]
  2. ZANTAC [Concomitant]
  3. GENERIC STATIN [Concomitant]
  4. LOSARTAN POTASSIUM AND HYDROCHLOROTHIAZIDE [Suspect]
     Indication: BLOOD PRESSURE
     Dosage: ORAL
     Route: 048
     Dates: start: 20110720
  5. SYMBICORT [Concomitant]
  6. VITAMIN D [Concomitant]
  7. PLAVIX [Concomitant]

REACTIONS (1)
  - PRODUCTIVE COUGH [None]
